FAERS Safety Report 12522835 (Version 2)
Quarter: 2016Q3

REPORT INFORMATION
  Report Type: Spontaneous
  Country: TH (occurrence: TH)
  Receive Date: 20160701
  Receipt Date: 20160707
  Transmission Date: 20161109
  Serious: Yes (Death, Other)
  Sender: FDA-Public Use
  Company Number: PHHY2016TH088683

PATIENT
  Age: 81 Year
  Sex: Male

DRUGS (2)
  1. DEXAMETHASONE. [Concomitant]
     Active Substance: DEXAMETHASONE
     Indication: PRODUCT USED FOR UNKNOWN INDICATION
     Dosage: 5 MG, Q6H
     Route: 042
     Dates: start: 20160322
  2. REVOLADE [Suspect]
     Active Substance: ELTROMBOPAG
     Indication: THROMBOCYTOPENIA
     Dosage: 50 MG, QD
     Route: 065
     Dates: start: 20160412

REACTIONS (3)
  - Prostate cancer [Unknown]
  - Drug abuse [Fatal]
  - Septic shock [Fatal]

NARRATIVE: CASE EVENT DATE: 20160429
